FAERS Safety Report 7690811-1 (Version None)
Quarter: 2011Q3

REPORT INFORMATION
  Report Type: 
  Country: None (occurrence: None)
  Receive Date: 20110812
  Receipt Date: 20110802
  Transmission Date: 20111222
  Serious: Yes (Other)
  Sender: FDA-Public Use
  Company Number: FK201101546

PATIENT
  Age: 61 Year
  Sex: Female

DRUGS (2)
  1. DOXORUBICIN HCL [Concomitant]
  2. IFOSFAMIDE [Suspect]
     Indication: SYNOVIAL SARCOMA
     Dosage: 4800 MG, FOR 3 DAYS

REACTIONS (4)
  - ENCEPHALOPATHY [None]
  - RENAL IMPAIRMENT [None]
  - ACUTE HEPATIC FAILURE [None]
  - HEPATOTOXICITY [None]
